FAERS Safety Report 15233161 (Version 2)
Quarter: 2018Q3

REPORT INFORMATION
  Report Type: Spontaneous
  Country: US (occurrence: US)
  Receive Date: 20180802
  Receipt Date: 20180821
  Transmission Date: 20181010
  Serious: Yes (Other)
  Sender: FDA-Public Use
  Company Number: US-TEVA-2018-US-934801

PATIENT
  Age: 73 Year
  Sex: Female

DRUGS (2)
  1. IDARUBICIN [Suspect]
     Active Substance: IDARUBICIN
     Indication: ACUTE MYELOID LEUKAEMIA
     Dosage: CONTINUOUS INFUSION FOR 3 DAYS
     Route: 065
  2. CYTARABINE. [Suspect]
     Active Substance: CYTARABINE
     Indication: ACUTE MYELOID LEUKAEMIA
     Dosage: CONTINUOUS INFUSION FOR 7 DAYS
     Route: 065

REACTIONS (2)
  - Mucosal inflammation [Unknown]
  - Febrile neutropenia [Unknown]
